FAERS Safety Report 6298798-3 (Version None)
Quarter: 2009Q3

REPORT INFORMATION
  Report Type: 
  Country: None (occurrence: None)
  Receive Date: 20090806
  Receipt Date: 20070621
  Transmission Date: 20100115
  Serious: Yes (Other)
  Sender: FDA-Public Use
  Company Number: US-ASTRAZENECA-2006UW11977

PATIENT
  Age: 642 Month
  Sex: Female
  Weight: 67.6 kg

DRUGS (21)
  1. SEROQUEL [Suspect]
     Dosage: STRENGTH- 10MG, 200MG, 400MG. DOSE- 100MG TO 800MG DAILY
     Route: 048
     Dates: start: 20030918
  2. ZYPREXA [Suspect]
  3. CLOZARIL [Concomitant]
  4. GEODON [Concomitant]
  5. RISPERDAL [Concomitant]
  6. XANAX [Concomitant]
     Indication: ANXIETY
     Dosage: 4MG TO 12MG DAILY
     Route: 048
     Dates: start: 20030204
  7. PREVACID [Concomitant]
     Indication: GASTROOESOPHAGEAL REFLUX DISEASE
     Dosage: 30 MG TO 80 MG DAILY
     Route: 048
     Dates: start: 20010917
  8. EFFEXOR XR [Concomitant]
     Indication: BIPOLAR DISORDER
     Dates: start: 20030814
  9. KLONOPIN [Concomitant]
     Indication: BIPOLAR DISORDER
     Dosage: STRENGTH- 1MG, 2MG. DOSE- 2MG TO 8MG DAILY
     Route: 048
     Dates: start: 20010508
  10. KLONOPIN [Concomitant]
     Indication: ANXIETY DISORDER
     Dosage: STRENGTH- 1MG, 2MG. DOSE- 2MG TO 8MG DAILY
     Route: 048
     Dates: start: 20010508
  11. KLONOPIN [Concomitant]
     Indication: BORDERLINE PERSONALITY DISORDER
     Dosage: STRENGTH- 1MG, 2MG. DOSE- 2MG TO 8MG DAILY
     Route: 048
     Dates: start: 20010508
  12. REMERON [Concomitant]
     Dosage: STRENGTH- 30MG, 15MG. DOSE- 45MG DAILY
     Route: 048
     Dates: start: 20010917
  13. LEXAPRO [Concomitant]
     Dates: start: 20040408
  14. DEPAKOTE [Concomitant]
     Indication: BIPOLAR DISORDER
     Dosage: 750 MG TO 1250 MG DAILY
     Route: 048
     Dates: start: 20011126
  15. LITHIUM [Concomitant]
     Indication: BIPOLAR DISORDER
     Dosage: 600 MG TO 1200 MG DAILY
     Dates: start: 20020913
  16. LORAZEPAM [Concomitant]
     Dates: start: 20031023
  17. OXYCONTIN [Concomitant]
     Indication: PAIN
     Dosage: 40 MG TO 80 MG DAILY
     Route: 048
     Dates: start: 20010919
  18. COMBIVENT [Concomitant]
     Indication: ASTHMA
     Dosage: 2 PUFFS FOUR TIMES A DAY, AS REQUIRED
     Route: 048
     Dates: start: 20020605
  19. TEGRETOL [Concomitant]
     Dosage: 400 MG TO 600 MG DAILY
     Route: 048
     Dates: start: 20071010
  20. ESTRACE [Concomitant]
     Dates: start: 20040303
  21. PROVERA [Concomitant]
     Dates: start: 20020715

REACTIONS (3)
  - DIABETES MELLITUS [None]
  - DIABETIC NEUROPATHY [None]
  - TYPE 2 DIABETES MELLITUS [None]
